FAERS Safety Report 8826539 (Version 2)
Quarter: 2012Q4

REPORT INFORMATION
  Report Type: Report from Study
  Country: CA (occurrence: CA)
  Receive Date: 20121008
  Receipt Date: 20121012
  Transmission Date: 20130627
  Serious: Yes (Other)
  Sender: FDA-Public Use
  Company Number: PHHY2012CA088123

PATIENT
  Sex: Male

DRUGS (2)
  1. CLOZARIL [Suspect]
     Indication: SCHIZOPHRENIA
     Dosage: 200 mg, Daily
     Route: 048
     Dates: start: 20051005
  2. ESOMEPRAZOLE [Concomitant]
     Dosage: 40 mg, Hs

REACTIONS (3)
  - Infection [Unknown]
  - Bronchitis viral [Recovered/Resolved]
  - Nasopharyngitis [Recovered/Resolved]
